FAERS Safety Report 7904109-7 (Version None)
Quarter: 2011Q4

REPORT INFORMATION
  Report Type: 
  Country: None (occurrence: None)
  Receive Date: 20111109
  Receipt Date: 20111104
  Transmission Date: 20120403
  Serious: No
  Sender: FDA-Public Use
  Company Number: US-B.I. PHARMACEUTICALS,INC./RIDGEFIELD-2011-BP-25661BP

PATIENT
  Sex: Female

DRUGS (6)
  1. ALPRAZOLAM [Concomitant]
     Indication: RELAXATION THERAPY
     Route: 048
  2. PERFOROMIST [Concomitant]
     Indication: CHRONIC OBSTRUCTIVE PULMONARY DISEASE
  3. PULMICORT [Concomitant]
     Indication: CHRONIC OBSTRUCTIVE PULMONARY DISEASE
     Route: 055
  4. PREDNISONE [Concomitant]
     Indication: LUNG DISORDER
     Dosage: 5 MG
     Route: 055
  5. SPIRIVA [Suspect]
     Indication: CHRONIC OBSTRUCTIVE PULMONARY DISEASE
     Dosage: 18 MCG
     Route: 055
  6. ATENOLOL [Concomitant]
     Indication: HEADACHE
     Route: 048

REACTIONS (3)
  - HAEMOPTYSIS [None]
  - DYSPNOEA [None]
  - FIBROSIS [None]
